FAERS Safety Report 9100515 (Version 1)
Quarter: 2013Q1

REPORT INFORMATION
  Report Type: Spontaneous
  Country: SE (occurrence: SE)
  Receive Date: 20130215
  Receipt Date: 20130215
  Transmission Date: 20140127
  Serious: Yes (Hospitalization)
  Sender: FDA-Public Use
  Company Number: PHHY2013SE014705

PATIENT
  Age: 23 Year
  Sex: Male

DRUGS (1)
  1. TEGRETOL RETARD [Suspect]
     Indication: EPILEPSY
     Dosage: 400 MG, BID
     Route: 048
     Dates: start: 1994, end: 2005

REACTIONS (1)
  - Gynaecomastia [Not Recovered/Not Resolved]
